FAERS Safety Report 19401866 (Version 1)
Quarter: 2021Q2

REPORT INFORMATION
  Report Type: Report from Study
  Country: CO (occurrence: CO)
  Receive Date: 20210610
  Receipt Date: 20210610
  Transmission Date: 20210717
  Serious: Yes (Death, Other)
  Sender: FDA-Public Use
  Company Number: CO-TAKEDA-CO201927208

PATIENT
  Age: 14 Year
  Sex: Male
  Weight: 33.11 kg

DRUGS (3)
  1. IDURSULFASE [Suspect]
     Active Substance: IDURSULFASE
     Indication: MUCOPOLYSACCHARIDOSIS II
     Dosage: 12 MILLIGRAM, 1X/WEEK
     Route: 042
     Dates: start: 20181108
  2. IDURSULFASE [Suspect]
     Active Substance: IDURSULFASE
     Dosage: 0.5 MILLIGRAM/KILOGRAM, 1/WEEK
     Route: 042
     Dates: start: 20200923
  3. IDURSULFASE [Suspect]
     Active Substance: IDURSULFASE
     Dosage: UNK
     Route: 065
     Dates: start: 20190628

REACTIONS (8)
  - Product dose omission issue [Unknown]
  - Dose calculation error [Unknown]
  - Pyrexia [Recovering/Resolving]
  - COVID-19 [Unknown]
  - Vomiting [Recovering/Resolving]
  - Respiratory arrest [Fatal]
  - Discomfort [Recovering/Resolving]
  - Malaise [Recovering/Resolving]

NARRATIVE: CASE EVENT DATE: 20190705
